FAERS Safety Report 7672798-0 (Version None)
Quarter: 2011Q3

REPORT INFORMATION
  Report Type: 
  Country: None (occurrence: None)
  Receive Date: 20110809
  Receipt Date: 20110802
  Transmission Date: 20111222
  Serious: Yes (Hospitalization)
  Sender: FDA-Public Use
  Company Number: US-US-EMD SERONO, INC.-7074814

PATIENT
  Sex: Male

DRUGS (2)
  1. REBIF [Suspect]
     Indication: MULTIPLE SCLEROSIS
     Route: 058
     Dates: start: 20070714
  2. REBIF [Suspect]
     Route: 058
     Dates: start: 20110101

REACTIONS (9)
  - BLADDER DISORDER [None]
  - DIARRHOEA [None]
  - CYSTITIS [None]
  - MUSCULAR WEAKNESS [None]
  - RECTAL CANCER [None]
  - AGITATION [None]
  - MOOD ALTERED [None]
  - MOBILITY DECREASED [None]
  - DIPLOPIA [None]
